FAERS Safety Report 7066610-0 (Version None)
Quarter: 2010Q4

REPORT INFORMATION
  Report Type: 
  Country: None (occurrence: None)
  Receive Date: 20101027
  Receipt Date: 20100730
  Transmission Date: 20110411
  Serious: Yes (Hospitalization, Other)
  Sender: FDA-Public Use
  Company Number: US-WYE-H16622610

PATIENT
  Sex: Female
  Weight: 66.28 kg

DRUGS (4)
  1. PREMPRO [Suspect]
     Indication: PROPHYLAXIS
     Dosage: 0.625 MG/ 2.5 MG DAILY
     Route: 048
     Dates: start: 20010101, end: 20030101
  2. PREMPRO [Suspect]
     Indication: HYSTERECTOMY
  3. ACETYLSALICYLIC ACID [Concomitant]
     Dosage: BABY ASPIRIN, FREQUENCY NOT PROVIDED
     Route: 065
  4. DIOVAN [Concomitant]
     Indication: HYPERTENSION
     Dosage: NOT PROVIDED
     Route: 065

REACTIONS (1)
  - BREAST CANCER [None]
